FAERS Safety Report 18417674 (Version 1)
Quarter: 2020Q4

REPORT INFORMATION
  Report Type: Spontaneous
  Country: US (occurrence: US)
  Receive Date: 20201022
  Receipt Date: 20201022
  Transmission Date: 20210114
  Serious: No
  Sender: FDA-Public Use
  Company Number: US-SEATTLE GENETICS-2020SGN03835

PATIENT
  Sex: Female

DRUGS (2)
  1. LEVETIRACETAM. [Concomitant]
     Active Substance: LEVETIRACETAM
     Indication: SEIZURE
  2. TUKYSA [Suspect]
     Active Substance: TUCATINIB
     Indication: BREAST CANCER FEMALE
     Dosage: 150MG, ONE TABLET BY MOUTH TWICE DAILY WITH FOOD
     Route: 048
     Dates: start: 20200812

REACTIONS (10)
  - Abdominal distension [Unknown]
  - Constipation [Unknown]
  - Dyspepsia [Unknown]
  - Fatigue [Unknown]
  - Abdominal discomfort [Unknown]
  - Fall [Unknown]
  - Pain [Unknown]
  - Energy increased [Unknown]
  - Balance disorder [Unknown]
  - Abnormal faeces [Recovering/Resolving]
